FAERS Safety Report 12752605 (Version 4)
Quarter: 2017Q1

REPORT INFORMATION
  Report Type: Spontaneous
  Country: TW (occurrence: TW)
  Receive Date: 20160916
  Receipt Date: 20170228
  Transmission Date: 20170428
  Serious: Yes (Life-Threatening, Hospitalization, Other)
  Sender: FDA-Public Use
  Company Number: TW-BAXTER-2016BAX046739

PATIENT
  Age: 70 Year
  Sex: Female

DRUGS (12)
  1. FLUCONAZOLE INJECTION [Suspect]
     Active Substance: FLUCONAZOLE
     Indication: CANDIDA INFECTION
  2. ASPIRIN. [Concomitant]
     Active Substance: ASPIRIN
     Indication: PRODUCT USED FOR UNKNOWN INDICATION
     Route: 065
     Dates: start: 2012
  3. REGULAR INSULIN [Concomitant]
     Active Substance: INSULIN NOS
     Indication: TYPE 2 DIABETES MELLITUS
     Dosage: NPH INSULIN PLUS REGULAR INSULIN TWICE DAILY
     Route: 065
     Dates: start: 2012
  4. ATORVASTATIN [Suspect]
     Active Substance: ATORVASTATIN
     Indication: HYPERLIPIDAEMIA
     Route: 065
     Dates: start: 2012
  5. ATORVASTATIN [Suspect]
     Active Substance: ATORVASTATIN
     Route: 065
  6. FLUCONAZOLE INJECTION [Suspect]
     Active Substance: FLUCONAZOLE
     Indication: UROSEPSIS
     Dosage: MAINTENANCE DOSE
     Route: 042
     Dates: end: 20120720
  7. FLUCONAZOLE INJECTION [Suspect]
     Active Substance: FLUCONAZOLE
     Indication: FUNGAEMIA
     Dosage: LOADING DOSE
     Route: 040
     Dates: start: 20120623
  8. ATORVASTATIN [Suspect]
     Active Substance: ATORVASTATIN
     Dosage: DOSE REDUCED TO 20 MG EVERY OTHER DAY
     Route: 065
     Dates: end: 2012
  9. TRAMADOL/ACETAMINOPHEN [Concomitant]
     Active Substance: ACETAMINOPHEN\TRAMADOL
     Indication: PRODUCT USED FOR UNKNOWN INDICATION
     Dosage: 37.5/325 MG EVERY 6 HOURS
     Route: 065
     Dates: start: 2012
  10. NPH INSULIN [Concomitant]
     Active Substance: INSULIN BEEF
     Indication: TYPE 2 DIABETES MELLITUS
     Dosage: NPH INSULIN PLUS REGULAR INSULIN TWICE DAILY
     Route: 065
     Dates: start: 2012
  11. PIPERACILLIN/TAZOBACTAM [Concomitant]
     Active Substance: PIPERACILLIN SODIUM\TAZOBACTAM SODIUM
     Indication: PNEUMONIA
     Route: 065
     Dates: start: 2012
  12. BISOPROLOL [Concomitant]
     Active Substance: BISOPROLOL
     Indication: PRODUCT USED FOR UNKNOWN INDICATION
     Route: 065
     Dates: start: 2012

REACTIONS (2)
  - Rhabdomyolysis [Recovered/Resolved]
  - Drug interaction [Recovered/Resolved]

NARRATIVE: CASE EVENT DATE: 2012
